FAERS Safety Report 20838576 (Version 1)
Quarter: 2022Q2

REPORT INFORMATION
  Report Type: Spontaneous
  Country: ES (occurrence: ES)
  Receive Date: 20220517
  Receipt Date: 20220517
  Transmission Date: 20220721
  Serious: Yes (Hospitalization, Other)
  Sender: FDA-Public Use
  Company Number: None

PATIENT
  Age: 62 Year
  Sex: Male

DRUGS (2)
  1. SPIRONOLACTONE [Suspect]
     Active Substance: SPIRONOLACTONE
     Indication: Alcoholic liver disease
     Dosage: 200 MG, 1X/DAY
     Route: 048
     Dates: start: 20210908, end: 20220110
  2. FUROSEMIDE [Suspect]
     Active Substance: FUROSEMIDE
     Indication: Alcoholic liver disease
     Dosage: 40 MG, 1X/DAY
     Route: 048
     Dates: start: 20210908, end: 20220110

REACTIONS (5)
  - Syncope [Recovered/Resolved]
  - Hyponatraemia [Recovered/Resolved]
  - Hepatic encephalopathy [Unknown]
  - Condition aggravated [Unknown]
  - Off label use [Unknown]

NARRATIVE: CASE EVENT DATE: 20210908
